FAERS Safety Report 6733387-5 (Version None)
Quarter: 2010Q2

REPORT INFORMATION
  Report Type: 
  Country: None (occurrence: None)
  Receive Date: 20100520
  Receipt Date: 20100511
  Transmission Date: 20101027
  Serious: Yes (Other)
  Sender: FDA-Public Use
  Company Number: GB-BAYER-200812652BNE

PATIENT
  Sex: Female

DRUGS (2)
  1. YASMIN [Suspect]
     Indication: CONTRACEPTION
  2. THE PILL [Suspect]
     Indication: CONTRACEPTION

REACTIONS (26)
  - ADVERSE DRUG REACTION [None]
  - ALOPECIA [None]
  - ANGER [None]
  - ANXIETY [None]
  - APATHY [None]
  - BLUNTED AFFECT [None]
  - CARDIOVASCULAR DISORDER [None]
  - DEPRESSED MOOD [None]
  - DEPRESSION [None]
  - DISSOCIATION [None]
  - EMOTIONAL DISORDER [None]
  - FEELING ABNORMAL [None]
  - GINGIVAL BLEEDING [None]
  - HORMONE LEVEL ABNORMAL [None]
  - HYPOGLYCAEMIA [None]
  - IMMUNOSUPPRESSION [None]
  - INFLUENZA LIKE ILLNESS [None]
  - LISTLESS [None]
  - LOSS OF LIBIDO [None]
  - MALAISE [None]
  - MALNUTRITION [None]
  - MENTAL DISORDER [None]
  - PARANOIA [None]
  - THINKING ABNORMAL [None]
  - URINARY TRACT INFECTION [None]
  - WEIGHT DECREASED [None]
